FAERS Safety Report 7951144-9 (Version None)
Quarter: 2011Q4

REPORT INFORMATION
  Report Type: 
  Country: None (occurrence: None)
  Receive Date: 20111123
  Receipt Date: 20111110
  Transmission Date: 20120403
  Serious: No
  Sender: FDA-Public Use
  Company Number: 2011SP045293

PATIENT
  Age: 27 Year
  Sex: Female
  Weight: 83.0083 kg

DRUGS (2)
  1. IMPLANON [Suspect]
     Indication: CONTRACEPTION
     Dosage: 1 DF;  ;SBDE
     Route: 059
     Dates: start: 20110128, end: 20111021
  2. OXYCONTIN [Concomitant]

REACTIONS (15)
  - MOOD SWINGS [None]
  - BREAST PAIN [None]
  - DEPRESSION [None]
  - AFFECT LABILITY [None]
  - HYPOAESTHESIA [None]
  - THYROID DISORDER [None]
  - METRORRHAGIA [None]
  - SINUSITIS [None]
  - DIZZINESS [None]
  - ABDOMINAL PAIN UPPER [None]
  - WEIGHT INCREASED [None]
  - NAUSEA [None]
  - PARTNER STRESS [None]
  - DYSMENORRHOEA [None]
  - SKIN IRRITATION [None]
